APPROVED DRUG PRODUCT: VANCOMYCIN HYDROCHLORIDE
Active Ingredient: VANCOMYCIN HYDROCHLORIDE
Strength: EQ 1GM BASE/VIAL
Dosage Form/Route: INJECTABLE;INJECTION
Application: A065401 | Product #002 | TE Code: AP
Applicant: MEDIMETRIKS PHARMACEUTICALS INC
Approved: Jun 30, 2008 | RLD: No | RS: No | Type: RX